FAERS Safety Report 26064935 (Version 1)
Quarter: 2025Q4

REPORT INFORMATION
  Report Type: Spontaneous
  Country: JP (occurrence: JP)
  Receive Date: 20251119
  Receipt Date: 20251119
  Transmission Date: 20260118
  Serious: Yes (Hospitalization, Other)
  Sender: PFIZER
  Company Number: JP-GENMAB-2025-02815

PATIENT
  Age: 45 Year
  Sex: Female

DRUGS (1)
  1. TIVDAK [Suspect]
     Active Substance: TISOTUMAB VEDOTIN-TFTV
     Indication: Cervix carcinoma recurrent
     Dosage: 2 MG/KG, CYCLIC
     Route: 042
     Dates: start: 20250901

REACTIONS (17)
  - Neutrophil count decreased [Unknown]
  - Hepatic function abnormal [Recovering/Resolving]
  - Rash [Recovered/Resolved]
  - Alopecia [Unknown]
  - Pyrexia [Unknown]
  - Nausea [Recovered/Resolved]
  - Eosinophil count increased [Unknown]
  - Oropharyngeal discomfort [Unknown]
  - Taste disorder [Unknown]
  - Oropharyngeal pain [Unknown]
  - Malaise [Unknown]
  - Eye pain [Unknown]
  - Hypoaesthesia [Unknown]
  - Hypoaesthesia [Unknown]
  - Decreased appetite [Unknown]
  - Epistaxis [Unknown]
  - Conjunctivitis [Unknown]

NARRATIVE: CASE EVENT DATE: 20250101
